FAERS Safety Report 7462675-2 (Version None)
Quarter: 2011Q2

REPORT INFORMATION
  Report Type: 
  Country: None (occurrence: None)
  Receive Date: 20110506
  Receipt Date: 20110427
  Transmission Date: 20111010
  Serious: Yes (Other)
  Sender: FDA-Public Use
  Company Number: PHHY2011FR36384

PATIENT
  Sex: Female

DRUGS (4)
  1. CRESTOR [Suspect]
     Dosage: 5 MG, QD
     Route: 048
  2. VALSARTAN [Suspect]
     Dosage: 40 MG, QD
     Route: 048
     Dates: end: 20110125
  3. FLECAINIDE ACETATE [Suspect]
     Dosage: 100 MG, QD
     Route: 048
  4. SERETIDE [Concomitant]
     Dosage: 250/25 MCG

REACTIONS (5)
  - DYSPNOEA [None]
  - ACUTE RESPIRATORY FAILURE [None]
  - ASTHMA [None]
  - LUNG DISORDER [None]
  - DYSPHONIA [None]
